FAERS Safety Report 5018296-4 (Version None)
Quarter: 2006Q2

REPORT INFORMATION
  Report Type: 
  Country: None (occurrence: None)
  Receive Date: 20060530
  Receipt Date: 20060516
  Transmission Date: 20061013
  Serious: Yes (Hospitalization, Disabling, Other)
  Sender: FDA-Public Use
  Company Number: 2006037868

PATIENT
  Age: 24 Year
  Sex: Female
  Weight: 49 kg

DRUGS (1)
  1. LYRICA [Suspect]
     Indication: PAIN
     Dosage: 60 MG (300 MG, 2 IN 1 D), ORAL
     Route: 048
     Dates: start: 20040901, end: 20051201

REACTIONS (7)
  - DEPRESSION [None]
  - DRUG WITHDRAWAL SYNDROME [None]
  - HEADACHE [None]
  - NIGHTMARE [None]
  - PAIN [None]
  - PALPITATIONS [None]
  - SUICIDAL IDEATION [None]
